FAERS Safety Report 6545861-5 (Version None)
Quarter: 2010Q1

REPORT INFORMATION
  Report Type: 
  Country: None (occurrence: None)
  Receive Date: 20100121
  Receipt Date: 20090202
  Transmission Date: 20100710
  Serious: No
  Sender: FDA-Public Use
  Company Number: US-ALLERGAN-0901177US

PATIENT
  Age: 61 Year
  Sex: Female

DRUGS (1)
  1. AVAGE CREAM 0.1% [Suspect]
     Indication: SKIN DISORDER
     Dosage: UNK, UNK
     Route: 061
     Dates: start: 20090101, end: 20090101

REACTIONS (1)
  - SKIN EXFOLIATION [None]
